FAERS Safety Report 7083664-6 (Version None)
Quarter: 2010Q4

REPORT INFORMATION
  Report Type: 
  Country: None (occurrence: None)
  Receive Date: 20101104
  Receipt Date: 20101022
  Transmission Date: 20110411
  Serious: Yes (Other)
  Sender: FDA-Public Use
  Company Number: BR-ELI_LILLY_AND_COMPANY-BR201010001578

PATIENT
  Sex: Female
  Weight: 61 kg

DRUGS (5)
  1. CYMBALTA [Suspect]
     Indication: FIBROMYALGIA
     Dosage: 60 MG, DAILY (1/D)
     Route: 048
     Dates: start: 20101001
  2. SINVASTATINA [Concomitant]
     Indication: BLOOD CHOLESTEROL
     Dosage: 20 MG, DAILY (1/D)
     Route: 048
     Dates: start: 20100901
  3. METFORMIN [Concomitant]
     Indication: DIABETES MELLITUS
     Dosage: 500 MG, DAILY (1/D)
     Route: 048
  4. OYSTER SHELL CALCIUM WITH VITAMIN D/01204201/ [Concomitant]
     Dosage: 500 MG, DAILY (1/D)
     Route: 048
     Dates: start: 20100901
  5. BI PROFENID [Concomitant]
     Indication: ARTHRALGIA
     Dosage: 150 MG, DAILY (1/D)
     Route: 048
     Dates: start: 20100901

REACTIONS (9)
  - ABDOMINAL PAIN [None]
  - CONFUSIONAL STATE [None]
  - COORDINATION ABNORMAL [None]
  - DIZZINESS [None]
  - INSOMNIA [None]
  - LACK OF SPONTANEOUS SPEECH [None]
  - MALAISE [None]
  - MENTAL DISORDER [None]
  - PALPITATIONS [None]
